FAERS Safety Report 4956234-0 (Version None)
Quarter: 2006Q1

REPORT INFORMATION
  Report Type: 
  Country: None (occurrence: None)
  Receive Date: 20060329
  Receipt Date: 20060317
  Transmission Date: 20060701
  Serious: Yes (Hospitalization)
  Sender: FDA-Public Use
  Company Number: FR-JNJFOC-20060304474

PATIENT
  Sex: Male

DRUGS (5)
  1. DURAGESIC-100 [Suspect]
     Route: 062
  2. DURAGESIC-100 [Suspect]
     Indication: CANCER PAIN
     Route: 062
  3. NEXIUM [Concomitant]
     Route: 065
  4. SPASFON [Concomitant]
     Route: 065
  5. SPASFON [Concomitant]
     Route: 065

REACTIONS (1)
  - INTESTINAL OBSTRUCTION [None]
